FAERS Safety Report 15107669 (Version 1)
Quarter: 2018Q3

REPORT INFORMATION
  Report Type: Spontaneous
  Country: IT (occurrence: IT)
  Receive Date: 20180704
  Receipt Date: 20180704
  Transmission Date: 20181010
  Serious: Yes (Other)
  Sender: FDA-Public Use
  Company Number: IT-TEVA-2018-IT-919647

PATIENT
  Age: 25 Year
  Sex: Female

DRUGS (1)
  1. AZITHROMYCIN ANHYDROUS. [Suspect]
     Active Substance: AZITHROMYCIN ANHYDROUS
     Indication: OROPHARYNGEAL PAIN
     Dosage: 500 MILLIGRAM DAILY;
     Route: 048
     Dates: start: 20180419, end: 20180424

REACTIONS (3)
  - Proctalgia [Unknown]
  - Anal inflammation [Unknown]
  - Intertrigo [Unknown]

NARRATIVE: CASE EVENT DATE: 20180425
